FAERS Safety Report 7386303-X (Version None)
Quarter: 2011Q1

REPORT INFORMATION
  Report Type: 
  Country: None (occurrence: None)
  Receive Date: 20110331
  Receipt Date: 20110317
  Transmission Date: 20110831
  Serious: Yes (Death, Disabling, Other)
  Sender: FDA-Public Use
  Company Number: PHHY2008JP23333

PATIENT
  Sex: Male
  Weight: 91 kg

DRUGS (7)
  1. GLEEVEC [Suspect]
     Indication: CHRONIC MYELOID LEUKAEMIA
     Dosage: 400 MG, UNK
     Route: 048
     Dates: start: 20020401
  2. GLEEVEC [Suspect]
     Dosage: 300 MG/DAY
     Route: 048
     Dates: start: 20020425, end: 20071112
  3. GLEEVEC [Suspect]
     Dosage: 200 MG/DAY
     Route: 048
     Dates: start: 20080128
  4. ALTAT [Concomitant]
     Indication: GASTRIC ULCER
     Dosage: UNK
     Route: 048
     Dates: start: 20020425
  5. ZYLORIC [Concomitant]
     Indication: HYPERURICAEMIA
     Dosage: 2 DF, PER DAY
     Route: 048
     Dates: start: 20010521
  6. GLEEVEC [Suspect]
     Dosage: 300 MG, UNK
     Route: 048
  7. DIOVAN [Concomitant]
     Indication: HYPERTENSION
     Dosage: 1 DF, PER DAY
     Route: 048
     Dates: start: 20020425

REACTIONS (10)
  - THROMBOCYTOPENIA [None]
  - MYELODYSPLASTIC SYNDROME [None]
  - MARROW HYPERPLASIA [None]
  - ANAEMIA MEGALOBLASTIC [None]
  - LEUKOPENIA [None]
  - HAEMOGLOBIN DECREASED [None]
  - CHROMOSOME ANALYSIS ABNORMAL [None]
  - BLOOD CREATININE INCREASED [None]
  - ACUTE MYELOID LEUKAEMIA [None]
  - PANCYTOPENIA [None]
